FAERS Safety Report 9289303 (Version 2)
Quarter: 2013Q2

REPORT INFORMATION
  Report Type: Spontaneous
  Country: None (occurrence: US)
  Receive Date: 20130514
  Receipt Date: 20130523
  Transmission Date: 20140414
  Serious: No
  Sender: FDA-Public Use
  Company Number: US-TEVA-404760USA

PATIENT
  Sex: Female
  Weight: 83.54 kg

DRUGS (5)
  1. PROAIR HFA [Suspect]
     Indication: ASTHMA
     Route: 055
  2. SYNTHROID [Concomitant]
     Indication: THYROID DISORDER
  3. ANTIHYPERTENSIVES [Concomitant]
     Indication: BLOOD PRESSURE
  4. CALCIUM [Concomitant]
     Indication: OSTEOPOROSIS
  5. CORTISPORIN OTIC [Concomitant]
     Indication: EAR INFECTION

REACTIONS (3)
  - Swelling [Not Recovered/Not Resolved]
  - Cough [Not Recovered/Not Resolved]
  - Drug ineffective [Not Recovered/Not Resolved]
